FAERS Safety Report 9132595 (Version 2)
Quarter: 2013Q3

REPORT INFORMATION
  Report Type: Spontaneous
  Country: US (occurrence: US)
  Receive Date: 20130301
  Receipt Date: 20130822
  Transmission Date: 20140515
  Serious: Yes (Other)
  Sender: FDA-Public Use
  Company Number: US-BAYER-2013-024951

PATIENT
  Sex: Female

DRUGS (1)
  1. MIRENA [Suspect]
     Indication: CONTRACEPTION
     Dosage: 20 MCG/24HR, CONT
     Route: 015

REACTIONS (8)
  - Device dislocation [None]
  - Drug ineffective [None]
  - Pregnancy with contraceptive device [None]
  - Paraesthesia [None]
  - Hypoaesthesia [None]
  - Feeling abnormal [None]
  - Fear [None]
  - Anxiety [None]
